FAERS Safety Report 4591490-2 (Version None)
Quarter: 2005Q1

REPORT INFORMATION
  Report Type: 
  Country: None (occurrence: None)
  Receive Date: 20050222
  Receipt Date: 20050209
  Transmission Date: 20050727
  Serious: Yes (Death, Hospitalization)
  Sender: FDA-Public Use
  Company Number: 2005028095

PATIENT
  Age: 81 Year
  Sex: Female
  Weight: 70.3075 kg

DRUGS (9)
  1. CELEBREX [Suspect]
     Indication: PAIN
     Dosage: 400 MG (200 MG,2 IN 1 D),ORAL
     Route: 048
     Dates: end: 20041201
  2. PIOGLITAZONE HCL [Concomitant]
  3. GABAPENTIN [Concomitant]
  4. AMITRIPTYLINE HCL [Concomitant]
  5. ATORVASTATIN (ATORVASTATIN) [Concomitant]
  6. LEVOTHYROXINE SODIUM [Concomitant]
  7. GLIMEPIRIDE [Concomitant]
  8. LISINOPRIL [Concomitant]
  9. INSULIN GLARGINE (INSULIN GLARGINE) [Concomitant]

REACTIONS (2)
  - FOOT OPERATION [None]
  - MYOCARDIAL INFARCTION [None]
